FAERS Safety Report 6687261-3 (Version None)
Quarter: 2010Q2

REPORT INFORMATION
  Report Type: 
  Country: None (occurrence: None)
  Receive Date: 20100415
  Receipt Date: 20100413
  Transmission Date: 20101027
  Serious: Yes (Death)
  Sender: FDA-Public Use
  Company Number: ALL1-2010-00644

PATIENT
  Age: 46 Year
  Sex: Male
  Weight: 35.6 kg

DRUGS (7)
  1. FOSRENOL [Suspect]
     Indication: HYPERPHOSPHATAEMIA
     Dosage: 1500 MG WITH MEALS, ORAL
     Route: 048
  2. ASPIRIN [Concomitant]
  3. COREG [Concomitant]
  4. PHENERGAN [Concomitant]
  5. XANAX [Concomitant]
  6. CALCIUM CARBONATE [Concomitant]
  7. LANTUS [Concomitant]

REACTIONS (1)
  - DEATH [None]
